FAERS Safety Report 8335088 (Version 2)
Quarter: 2012Q4

REPORT INFORMATION
  Report Type: 
  Country: JP (occurrence: JP)
  Receive Date: 20120112
  Receipt Date: 20120907
  Transmission Date: 20130627
  Serious: Yes (Other)
  Sender: FDA-Public Use
  Company Number: JP-BAXTER-2012BH000379

PATIENT

DRUGS (3)
  1. BUMINATE [Suspect]
     Indication: SURGERY
     Route: 065
     Dates: start: 201110
  2. GAMMAGARD [Suspect]
     Indication: POSTOPERATIVE INFECTION
     Route: 065
  3. GAMMAGARD [Suspect]
     Indication: INTENTIONAL USE FOR UNLABELED INDICATION

REACTIONS (5)
  - Hepatitis C antibody positive [Unknown]
  - Post procedural infection [Unknown]
  - Aspartate aminotransferase increased [Unknown]
  - Alanine aminotransferase increased [Unknown]
  - Off label use [None]
